FAERS Safety Report 20107844 (Version 1)
Quarter: 2021Q4

REPORT INFORMATION
  Report Type: Spontaneous
  Country: US (occurrence: US)
  Receive Date: 20211124
  Receipt Date: 20211124
  Transmission Date: 20220303
  Serious: No
  Sender: FDA-Public Use
  Company Number: US-PERRIGO-21US002921

PATIENT
  Age: 71 Year
  Sex: Female
  Weight: 44.444 kg

DRUGS (7)
  1. POLYETHYLENE GLYCOL 3350 [Suspect]
     Active Substance: POLYETHYLENE GLYCOL 3350
     Indication: Constipation
     Dosage: 17 G, QD
     Route: 048
     Dates: start: 20210220
  2. DOCUSATE SODIUM [Suspect]
     Active Substance: DOCUSATE SODIUM
     Indication: Constipation
     Dosage: 1 SOFTGEL, BID
     Route: 048
     Dates: start: 20210220, end: 20210220
  3. DOCUSATE SODIUM [Suspect]
     Active Substance: DOCUSATE SODIUM
     Dosage: 1 SOFTGEL, SINGLE
     Route: 048
     Dates: start: 20210221, end: 20210221
  4. VITAMINS [Concomitant]
     Active Substance: VITAMINS
     Indication: Supplementation therapy
     Dosage: UNKNOWN, UNKNOWN
     Route: 065
  5. METOPROLOL [Concomitant]
     Active Substance: METOPROLOL
     Indication: Hypertension
     Dosage: UNKNOWN,UNKNOWN
     Route: 065
  6. FETZIMA [Concomitant]
     Active Substance: LEVOMILNACIPRAN HYDROCHLORIDE
     Indication: Vulvovaginal pain
     Dosage: UNKNOWN, UNKNOWN
     Route: 065
     Dates: start: 202101
  7. KLONOPIN [Concomitant]
     Active Substance: CLONAZEPAM
     Indication: Pain
     Dosage: UNKNOWN,UNKNOWN
     Route: 065

REACTIONS (4)
  - Proctalgia [Not Recovered/Not Resolved]
  - Flatulence [Recovering/Resolving]
  - Frequent bowel movements [Not Recovered/Not Resolved]
  - Diarrhoea [Recovering/Resolving]

NARRATIVE: CASE EVENT DATE: 20210221
